FAERS Safety Report 8281127-3 (Version None)
Quarter: 2012Q2

REPORT INFORMATION
  Report Type: 
  Country: None (occurrence: None)
  Receive Date: 20120413
  Receipt Date: 20120403
  Transmission Date: 20120825
  Serious: Yes (Hospitalization)
  Sender: FDA-Public Use
  Company Number: JP-BIOGENIDEC-2011BI015614

PATIENT
  Age: 47 Year
  Sex: Female

DRUGS (9)
  1. AVONEX [Suspect]
     Route: 030
     Dates: start: 20100904, end: 20111201
  2. LENDORMIN D [Concomitant]
     Dates: start: 20091121
  3. PAXIL [Concomitant]
     Dates: start: 20091101, end: 20101201
  4. DEPAKENE [Concomitant]
     Dates: start: 20091001
  5. ALMARL [Concomitant]
     Dates: start: 20100118
  6. AVONEX [Suspect]
     Indication: SECONDARY PROGRESSIVE MULTIPLE SCLEROSIS
     Route: 030
     Dates: start: 20100302, end: 20100308
  7. AVONEX [Suspect]
     Route: 030
     Dates: start: 20100309, end: 20100811
  8. ARICEPT [Concomitant]
     Dates: start: 20091201
  9. PHENYTOIN SODIUM CAP [Concomitant]
     Dates: start: 20100810, end: 20100810

REACTIONS (4)
  - EPILEPSY [None]
  - DEHYDRATION [None]
  - UPPER RESPIRATORY TRACT INFECTION [None]
  - WHITE BLOOD CELL COUNT INCREASED [None]
